FAERS Safety Report 4704878-3 (Version None)
Quarter: 2005Q3

REPORT INFORMATION
  Report Type: 
  Country: None (occurrence: None)
  Receive Date: 20050701
  Receipt Date: 20050610
  Transmission Date: 20060218
  Serious: Yes (Other)
  Sender: FDA-Public Use
  Company Number: PHFR2005GB02119

PATIENT
  Age: 14 Year
  Sex: Male

DRUGS (4)
  1. TRILEPTAL [Suspect]
     Indication: EPILEPSY
     Dosage: 75 MG, BID
     Route: 065
     Dates: start: 20050501
  2. KEPPRA [Concomitant]
     Indication: EPILEPSY
     Dosage: 500 MG, BID
     Route: 048
  3. LAMICTAL [Concomitant]
     Indication: EPILEPSY
     Dosage: 125 MG, TID
     Route: 048
  4. IBUPROFEN [Concomitant]
     Dosage: 100 MG, TID
     Route: 048

REACTIONS (1)
  - BREATH HOLDING [None]
